FAERS Safety Report 9345310 (Version 2)
Quarter: 2013Q3

REPORT INFORMATION
  Report Type: Spontaneous
  Country: US (occurrence: US)
  Receive Date: 20130613
  Receipt Date: 20130716
  Transmission Date: 20140515
  Serious: Yes (Other)
  Sender: FDA-Public Use
  Company Number: US-AMGEN-USASP2013040292

PATIENT
  Age: 5 Year
  Sex: Female

DRUGS (6)
  1. ENBREL [Suspect]
     Dosage: 50 MG, QWK
     Route: 064
     Dates: start: 20060101
  2. ENBREL [Suspect]
     Dosage: 50 MG, QWK
     Route: 064
     Dates: start: 20060101
  3. DIPHTHERIA AND TETANUS TOXOIDS AND PERTUSSIS [Suspect]
     Dosage: UNK
  4. MULTIVITAMINS, PLAIN [Concomitant]
     Dosage: UNK UNK, QD
     Route: 064
  5. PREDNISONE [Concomitant]
     Dosage: 2 MG, QD
     Route: 064
  6. SYNTHROID [Concomitant]
     Dosage: 50 MG, QD
     Route: 064

REACTIONS (3)
  - Autoimmune haemolytic anaemia [Not Recovered/Not Resolved]
  - Crohn^s disease [Not Recovered/Not Resolved]
  - Premature baby [Unknown]
